FAERS Safety Report 5007404-7 (Version None)
Quarter: 2006Q2

REPORT INFORMATION
  Report Type: 
  Country: None (occurrence: None)
  Receive Date: 20060518
  Receipt Date: 20060518
  Transmission Date: 20061013
  Serious: Yes (Hospitalization)
  Sender: FDA-Public Use
  Company Number: None

PATIENT
  Sex: Male
  Weight: 72.5755 kg

DRUGS (16)
  1. LINEZOLID [Suspect]
     Indication: INFECTION
     Dosage: 600 MG BID PO
     Route: 048
     Dates: start: 20060424, end: 20060511
  2. CARVEDILOL [Concomitant]
  3. ESCITALOPRAM OXALATE [Concomitant]
  4. ATORVASTATIN CALCIUM [Concomitant]
  5. PANTOPRAZOLE [Concomitant]
  6. AMLODIPINE [Concomitant]
  7. ZOLPIDEM TARTRATE [Concomitant]
  8. ALBUTEROL SULFATE AUTOHALER [Concomitant]
  9. IPRATROPIUM BROMIDE [Concomitant]
  10. INSULIN [Concomitant]
  11. METOCLOPRAMIDE [Concomitant]
  12. MORPHINE [Concomitant]
  13. OXYCODONE AND ACETAMINOPHEN [Concomitant]
  14. ASPIRIN [Concomitant]
  15. FUROSEMIDE [Concomitant]
  16. POTASSIUM [Concomitant]

REACTIONS (2)
  - NEUTROPENIA [None]
  - THROMBOCYTOPENIA [None]
